FAERS Safety Report 10530781 (Version 2)
Quarter: 2014Q4

REPORT INFORMATION
  Report Type: Spontaneous
  Country: JP (occurrence: JP)
  Receive Date: 20141021
  Receipt Date: 20141021
  Transmission Date: 20150528
  Serious: Yes (Hospitalization, Other)
  Sender: FDA-Public Use
  Company Number: JP-GLAXOSMITHKLINE-B1026093A

PATIENT
  Age: 21 Year
  Sex: Female
  Weight: 80 kg

DRUGS (5)
  1. RIVOTRIL [Concomitant]
     Active Substance: CLONAZEPAM
     Indication: EPILEPSY
     Dosage: 0.5 MG, BID
  2. LAMOTRIGINE. [Suspect]
     Active Substance: LAMOTRIGINE
     Indication: EPILEPSY
     Dosage: 25 MG, QOD
     Route: 048
     Dates: start: 20140603, end: 20140617
  3. LOXONIN [Concomitant]
     Active Substance: LOXOPROFEN SODIUM
     Dosage: UNK, U
  4. SELENICA-R [Concomitant]
     Active Substance: SELENIUM
     Indication: EPILEPSY
     Dosage: UNK, BID
  5. LAMOTRIGINE. [Suspect]
     Active Substance: LAMOTRIGINE
     Dosage: 25 MG, QD
     Route: 048
     Dates: start: 20140618, end: 20140627

REACTIONS (15)
  - Erythema of eyelid [Recovered/Resolved]
  - Sebaceous hyperplasia [Unknown]
  - Oral pruritus [Unknown]
  - Rash [Recovering/Resolving]
  - Stevens-Johnson syndrome [Recovered/Resolved]
  - Oral mucosa erosion [Recovered/Resolved]
  - Ocular hyperaemia [Recovered/Resolved]
  - Scab [Unknown]
  - Erythema [Unknown]
  - Blister [Unknown]
  - Pyrexia [Unknown]
  - Lip oedema [Unknown]
  - Eye discharge [Unknown]
  - Lip erosion [Recovered/Resolved]
  - Hypophagia [Recovered/Resolved]

NARRATIVE: CASE EVENT DATE: 20140628
